FAERS Safety Report 15498169 (Version 5)
Quarter: 2019Q2

REPORT INFORMATION
  Report Type: Spontaneous
  Country: US (occurrence: US)
  Receive Date: 20181015
  Receipt Date: 20190524
  Transmission Date: 20190711
  Serious: Yes (Other)
  Sender: FDA-Public Use
  Company Number: US-PFIZER INC-2018418660

PATIENT
  Age: 62 Year
  Sex: Male

DRUGS (25)
  1. FUROSEMIDE. [Concomitant]
     Active Substance: FUROSEMIDE
     Dosage: 1 DF, 2X/DAY
     Route: 048
  2. FUROSEMIDE. [Concomitant]
     Active Substance: FUROSEMIDE
     Dosage: 1 DF, 1X/DAY
     Route: 048
  3. SYNTHROID [Concomitant]
     Active Substance: LEVOTHYROXINE SODIUM
     Dosage: 1 DF, DAILY
     Route: 048
  4. VITAMIN D3 [Concomitant]
     Active Substance: CHOLECALCIFEROL
     Dosage: 5000 IU, 1X/DAY
     Route: 048
  5. SAW PALMETTO [Concomitant]
     Active Substance: HERBALS\SAW PALMETTO
     Dosage: UNK
     Route: 048
  6. DILANTIN [Suspect]
     Active Substance: PHENYTOIN
     Indication: LOSS OF CONSCIOUSNESS
  7. RAZADYNE [Concomitant]
     Active Substance: GALANTAMINE HYDROBROMIDE
     Dosage: 1 DF, 1X/DAY, WITH BREAKFAST
     Route: 048
  8. VITAMIN C AND E [Concomitant]
     Active Substance: .ALPHA.-TOCOPHEROL\ASCORBIC ACID
     Dosage: UNK
     Route: 048
  9. DILANTIN [Suspect]
     Active Substance: PHENYTOIN
     Indication: SEIZURE
     Dosage: UNK
     Route: 048
  10. NIACIN. [Concomitant]
     Active Substance: NIACIN
     Dosage: 1 DF, 3X/DAY
  11. METOPROLOL TARTRATE. [Concomitant]
     Active Substance: METOPROLOL TARTRATE
     Dosage: 1 DF, 2X/DAY
     Route: 048
  12. ZESTRIL [Concomitant]
     Active Substance: LISINOPRIL
     Dosage: 1 DF, 1X/DAY
     Route: 048
  13. UBIDECARENONE Q-10 (CO Q-10) [Concomitant]
     Dosage: 1 DF, 2X/DAY
     Route: 048
  14. AZILECT [Concomitant]
     Active Substance: RASAGILINE MESYLATE
     Dosage: 1 DF, DAILY
     Route: 048
  15. RAZADYNE [Concomitant]
     Active Substance: GALANTAMINE HYDROBROMIDE
     Dosage: 8 MG, 1X/DAY
     Route: 048
  16. CALCIUM AND MAGNESIUM CARBONATES [Concomitant]
     Dosage: UNK
     Route: 048
  17. LISINOPRIL. [Concomitant]
     Active Substance: LISINOPRIL
     Dosage: 10 MG, 1X/DAY
  18. STALEVO 75 [Concomitant]
     Dosage: 1 DF, 4X/DAY (STENGTH: 75)
     Route: 048
  19. ASPIRIN. [Concomitant]
     Active Substance: ASPIRIN
     Dosage: 1 DF, 1X/DAY
     Route: 048
  20. MAGNESIUM [Concomitant]
     Active Substance: MAGNESIUM
     Dosage: 1 DF, 3X/DAY
  21. ASPIRIN. [Concomitant]
     Active Substance: ASPIRIN
     Dosage: 1 DF, 1X/DAY
  22. ALPHA LIPOIC ACID [Concomitant]
     Active Substance: .ALPHA.-LIPOIC ACID
     Dosage: 1 DF, 1X/DAY
     Route: 048
  23. RAZADYNE [Concomitant]
     Active Substance: GALANTAMINE HYDROBROMIDE
     Dosage: 16 MG, DAILY
     Route: 048
  24. LIOTHYRONINE [Concomitant]
     Active Substance: LIOTHYRONINE
     Dosage: 1 DF, 1X/DAY
     Route: 048
  25. PRINIVIL [Concomitant]
     Active Substance: LISINOPRIL
     Dosage: 1 DF, 1X/DAY
     Route: 048

REACTIONS (6)
  - Cerebellar atrophy [Unknown]
  - IVth nerve paralysis [Unknown]
  - Cognitive disorder [Unknown]
  - Speech disorder [Unknown]
  - Gait disturbance [Unknown]
  - Ataxia [Unknown]

NARRATIVE: CASE EVENT DATE: 20180102
